FAERS Safety Report 13901484 (Version 2)
Quarter: 2018Q1

REPORT INFORMATION
  Report Type: Report from Study
  Country: None (occurrence: DE)
  Receive Date: 20170824
  Receipt Date: 20180209
  Transmission Date: 20180508
  Serious: Yes (Hospitalization)
  Sender: FDA-Public Use
  Company Number: DE-ABBVIE-17K-062-2081639-00

PATIENT
  Sex: Female

DRUGS (4)
  1. HUMIRA [Suspect]
     Active Substance: ADALIMUMAB
     Indication: RHEUMATOID ARTHRITIS
     Route: 058
     Dates: start: 200806, end: 201104
  2. LEFLUNOMID [Concomitant]
     Active Substance: LEFLUNOMIDE
     Indication: PRODUCT USED FOR UNKNOWN INDICATION
  3. LEFLUNOMID [Concomitant]
     Active Substance: LEFLUNOMIDE
     Dates: end: 2013
  4. HUMIRA [Suspect]
     Active Substance: ADALIMUMAB
     Route: 058
     Dates: start: 201112

REACTIONS (2)
  - Telangiectasia [Recovered/Resolved]
  - Gastrointestinal haemorrhage [Recovered/Resolved]
